FAERS Safety Report 20966479 (Version 1)
Quarter: 2022Q2

REPORT INFORMATION
  Report Type: Spontaneous
  Country: US (occurrence: None)
  Receive Date: 20220615
  Receipt Date: 20220615
  Transmission Date: 20220721
  Serious: Yes (Death)
  Sender: FDA-Public Use
  Company Number: None

PATIENT
  Age: 77 Year
  Sex: Male
  Weight: 126.8 kg

DRUGS (8)
  1. METFORMIN [Suspect]
     Active Substance: METFORMIN HYDROCHLORIDE
     Indication: Type 2 diabetes mellitus
     Dosage: FREQUENCY : TWICE A DAY;?
     Route: 048
     Dates: start: 20190918, end: 20220606
  2. ASPIRIN [Concomitant]
     Active Substance: ASPIRIN
     Dates: start: 20080310
  3. Plavix 75mg Daily [Concomitant]
     Dates: start: 20211215
  4. Lasix 20mg Daily [Concomitant]
     Dates: start: 20200325
  5. Levothyoxine 112mcg Daily [Concomitant]
     Dates: start: 20190912
  6. Lisinopril 20mg daily [Concomitant]
     Dates: start: 20191019
  7. Metoprolol succinate 50mg daily [Concomitant]
     Dates: start: 20191120
  8. ROSUVASTATIN [Concomitant]
     Active Substance: ROSUVASTATIN
     Dates: start: 20220414

REACTIONS (8)
  - Nausea [None]
  - Retching [None]
  - Diarrhoea [None]
  - Loss of consciousness [None]
  - Pulseless electrical activity [None]
  - Metabolic acidosis [None]
  - Lactic acidosis [None]
  - Toxicity to various agents [None]

NARRATIVE: CASE EVENT DATE: 20220606
